FAERS Safety Report 20770631 (Version 1)
Quarter: 2022Q2

REPORT INFORMATION
  Report Type: Spontaneous
  Country: US (occurrence: None)
  Receive Date: 20220429
  Receipt Date: 20220429
  Transmission Date: 20220721
  Serious: Yes (Disabling)
  Sender: FDA-Public Use
  Company Number: None

PATIENT
  Age: 41 Year
  Sex: Female
  Weight: 47.25 kg

DRUGS (5)
  1. VENLAFAXINE [Suspect]
     Active Substance: VENLAFAXINE HYDROCHLORIDE
     Indication: Depression
  2. BUPROPION [Concomitant]
  3. XULANE [Concomitant]
     Active Substance: ETHINYL ESTRADIOL\NORELGESTROMIN
  4. SUMATRIPTAN SUCCINATE [Concomitant]
     Active Substance: SUMATRIPTAN SUCCINATE
  5. MESALAMINE ENEMAS [Concomitant]

REACTIONS (8)
  - Libido decreased [None]
  - Postpartum anxiety [None]
  - Depression [None]
  - Libido decreased [None]
  - Hypoaesthesia [None]
  - Anxiety [None]
  - Sexual dysfunction [None]
  - Emotional distress [None]

NARRATIVE: CASE EVENT DATE: 20210401
